FAERS Safety Report 22656527 (Version 4)
Quarter: 2023Q4

REPORT INFORMATION
  Report Type: Report from Study
  Country: US (occurrence: US)
  Receive Date: 20230630
  Receipt Date: 20231215
  Transmission Date: 20240110
  Serious: No
  Sender: FDA-Public Use
  Company Number: US-ACADIA PHARMACEUTICALS INC.-ACA-2023-TRF-002209

PATIENT
  Age: 11 Year
  Sex: Female

DRUGS (6)
  1. DAYBUE [Suspect]
     Active Substance: TROFINETIDE
     Indication: Rett syndrome
     Dosage: 40 MILLILITER, BID
     Route: 048
     Dates: start: 20230516
  2. ONFI [Suspect]
     Active Substance: CLOBAZAM
     Dosage: 4 MILLILITER, BID
  3. VIMPAT [Concomitant]
     Active Substance: LACOSAMIDE
  4. ONFI [Concomitant]
     Active Substance: CLOBAZAM
  5. FIBER [Concomitant]
  6. PEDIALYTE 30 [Concomitant]
     Indication: Dehydration

REACTIONS (12)
  - Limb injury [Unknown]
  - Hypersomnia [Unknown]
  - Drug interaction [Unknown]
  - Feeling abnormal [Unknown]
  - Hypersomnia [Unknown]
  - Drug interaction [Unknown]
  - Diarrhoea [Not Recovered/Not Resolved]
  - Diarrhoea [Not Recovered/Not Resolved]
  - Diarrhoea [Not Recovered/Not Resolved]
  - Fatigue [Not Recovered/Not Resolved]
  - Diarrhoea [Unknown]
  - Fatigue [Unknown]

NARRATIVE: CASE EVENT DATE: 20230516
